FAERS Safety Report 12736061 (Version 1)
Quarter: 2016Q3

REPORT INFORMATION
  Report Type: Spontaneous
  Country: CA (occurrence: CA)
  Receive Date: 20160913
  Receipt Date: 20160913
  Transmission Date: 20161109
  Serious: Yes (Hospitalization)
  Sender: FDA-Public Use
  Company Number: CA-ROCHE-1829241

PATIENT
  Age: 48 Year
  Sex: Female
  Weight: 105 kg

DRUGS (7)
  1. PEGASYS [Suspect]
     Active Substance: PEGINTERFERON ALFA-2A
     Indication: HEPATITIS C VIRUS TEST POSITIVE
     Route: 048
  2. CLOZAPINE. [Concomitant]
     Active Substance: CLOZAPINE
     Route: 065
  3. RIBAVIRIN. [Suspect]
     Active Substance: RIBAVIRIN
     Indication: HEPATITIS C VIRUS TEST POSITIVE
     Route: 048
  4. DOCUSATE CALCIUM. [Concomitant]
     Active Substance: DOCUSATE CALCIUM
     Route: 065
  5. ATROVENT [Concomitant]
     Active Substance: IPRATROPIUM BROMIDE
  6. SOVALDI [Suspect]
     Active Substance: SOFOSBUVIR
     Indication: HEPATITIS C VIRUS TEST POSITIVE
     Route: 048
  7. QUETIAPINE. [Concomitant]
     Active Substance: QUETIAPINE
     Route: 065

REACTIONS (6)
  - Cognitive disorder [Recovered/Resolved]
  - Neutropenia [Recovered/Resolved]
  - Psychotic disorder [Recovered/Resolved]
  - Mental impairment [Recovered/Resolved]
  - White blood cell count decreased [Recovered/Resolved]
  - Confusional state [Recovered/Resolved]
